FAERS Safety Report 18713193 (Version 1)
Quarter: 2021Q1

REPORT INFORMATION
  Report Type: Spontaneous
  Country: TR (occurrence: TR)
  Receive Date: 20210107
  Receipt Date: 20210107
  Transmission Date: 20210419
  Serious: Yes (Death)
  Sender: FDA-Public Use
  Company Number: NVSC2021TR002523

PATIENT
  Sex: Male

DRUGS (2)
  1. ONEPTUS [Suspect]
     Active Substance: SACUBITRIL\VALSARTAN
     Indication: CARDIAC FAILURE
     Dosage: 1 DF (49/51 MG), BID
     Route: 065
     Dates: start: 2018
  2. ONEPTUS [Suspect]
     Active Substance: SACUBITRIL\VALSARTAN
     Indication: DYSPNOEA

REACTIONS (1)
  - Death [Fatal]
